FAERS Safety Report 14947509 (Version 1)
Quarter: 2018Q2

REPORT INFORMATION
  Report Type: Spontaneous
  Country: US (occurrence: US)
  Receive Date: 20180529
  Receipt Date: 20180529
  Transmission Date: 20180711
  Serious: No
  Sender: FDA-Public Use
  Company Number: US-BAUSCH-BL-2017-015862

PATIENT
  Sex: Female
  Weight: 68.1 kg

DRUGS (2)
  1. MESTINON [Suspect]
     Active Substance: PYRIDOSTIGMINE BROMIDE
     Indication: MYASTHENIA GRAVIS
     Dosage: 3 TABLETS EVERY 3 HOURS
     Route: 048
  2. MESTINON [Concomitant]
     Active Substance: PYRIDOSTIGMINE BROMIDE
     Indication: MYASTHENIA GRAVIS
     Dosage: 1 TO 3 TABLETS ONCE TO TWICE DAILY
     Route: 048

REACTIONS (1)
  - Drug dose omission [Unknown]
